FAERS Safety Report 19149844 (Version 2)
Quarter: 2021Q4

REPORT INFORMATION
  Report Type: Spontaneous
  Country: GB (occurrence: GB)
  Receive Date: 20210417
  Receipt Date: 20211118
  Transmission Date: 20220303
  Serious: Yes (Other)
  Sender: FDA-Public Use
  Company Number: None

PATIENT
  Age: 48 Year
  Sex: Female
  Weight: 92.07 kg

DRUGS (1)
  1. FLUOXETINE [Suspect]
     Active Substance: FLUOXETINE HYDROCHLORIDE
     Indication: Depression
     Dosage: 20
     Route: 048

REACTIONS (8)
  - Agitation [Unknown]
  - Restlessness [Unknown]
  - Hypervigilance [Unknown]
  - Paranoia [Unknown]
  - Crying [Unknown]
  - Pruritus [Unknown]
  - Feeling cold [Unknown]
  - Mood altered [Unknown]

NARRATIVE: CASE EVENT DATE: 20210331
